FAERS Safety Report 25699669 (Version 1)
Quarter: 2025Q3

REPORT INFORMATION
  Report Type: Spontaneous
  Country: EU (occurrence: EU)
  Receive Date: 20250819
  Receipt Date: 20250819
  Transmission Date: 20251021
  Serious: Yes (Death, Hospitalization)
  Sender: MYLAN
  Company Number: EU-MYLANLABS-2025M1069583

PATIENT
  Age: 73 Year
  Sex: Male

DRUGS (1)
  1. VANCOMYCIN [Suspect]
     Active Substance: VANCOMYCIN
     Indication: Intervertebral discitis

REACTIONS (2)
  - Drug ineffective [Fatal]
  - Renal impairment [Unknown]
